FAERS Safety Report 22848312 (Version 2)
Quarter: 2024Q3

REPORT INFORMATION
  Report Type: Spontaneous
  Country: JP (occurrence: JP)
  Receive Date: 20230822
  Receipt Date: 20240717
  Transmission Date: 20241017
  Serious: Yes (Hospitalization, Other)
  Sender: STRIDES
  Company Number: None

PATIENT
  Age: 85 Year
  Sex: Female

DRUGS (14)
  1. FUROSEMIDE [Interacting]
     Active Substance: FUROSEMIDE
     Indication: Oedema peripheral
     Dosage: 40 MILLIGRAM, QD (PER DAY)
     Route: 065
  2. ELDECALCITOL [Interacting]
     Active Substance: ELDECALCITOL
     Indication: Osteoporosis
     Dosage: 0.75 GRAM, QD (PER DAY)
     Route: 048
  3. HYDROCHLOROTHIAZIDE\LOSARTAN [Interacting]
     Active Substance: HYDROCHLOROTHIAZIDE\LOSARTAN
     Indication: Product used for unknown indication
     Dosage: 1 DOSAGE FORM, QD (PER DAY)
     Route: 048
  4. CALCIUM ASPARTATE [Interacting]
     Active Substance: CALCIUM ASPARTATE
     Indication: Osteoporosis
     Dosage: 400 MILLIGRAM, QD (PER DAY)
     Route: 048
  5. CELECOXIB [Interacting]
     Active Substance: CELECOXIB
     Indication: Product used for unknown indication
     Dosage: 200 MILLIGRAM, QD (PER DAY)
     Route: 048
  6. EZETIMIBE [Concomitant]
     Active Substance: EZETIMIBE
     Indication: Product used for unknown indication
     Dosage: 10 MILLIGRAM, QD (PER DAY)
     Route: 048
  7. BENSERAZIDE HYDROCHLORIDE\LEVODOPA [Concomitant]
     Active Substance: BENSERAZIDE HYDROCHLORIDE\LEVODOPA
     Indication: Product used for unknown indication
     Dosage: 2 DOSAGE FORM, QD (PER DAY)
     Route: 048
  8. REBAMIPIDE [Concomitant]
     Active Substance: REBAMIPIDE
     Indication: Product used for unknown indication
     Dosage: 200 MILLIGRAM, QD (PER DAY)
     Route: 048
  9. PIRENZEPINE [Concomitant]
     Active Substance: PIRENZEPINE
     Indication: Product used for unknown indication
     Dosage: 50 MILLIGRAM, QD (PER DAY)
     Route: 048
  10. ATORVASTATIN [Concomitant]
     Active Substance: ATORVASTATIN
     Indication: Product used for unknown indication
     Dosage: 10 MILLIGRAM, QD (PER DAY)
     Route: 048
  11. ICOSAPENT ETHYL [Concomitant]
     Active Substance: ICOSAPENT ETHYL
     Indication: Product used for unknown indication
     Dosage: 900 MILLIGRAM, QD (PER DAY)
     Route: 048
  12. SITAGLIPTIN [Concomitant]
     Active Substance: SITAGLIPTIN
     Indication: Product used for unknown indication
     Dosage: 50 MILLIGRAM, QD (PER DAY)
     Route: 048
  13. ZOLPIDEM [Concomitant]
     Active Substance: ZOLPIDEM TARTRATE
     Indication: Product used for unknown indication
     Dosage: 5 MILLIGRAM, PRESCRIBED TO BE TAKEN USING THE ^PILL-IN-THE-POCKET^ APPROACH
     Route: 048
  14. FAMOTIDINE [Concomitant]
     Active Substance: FAMOTIDINE
     Indication: Product used for unknown indication
     Dosage: 40 MILLIGRAM, QD (PER DAY)
     Route: 048

REACTIONS (13)
  - Hypophosphataemia [Recovered/Resolved]
  - Electrocardiogram abnormal [Unknown]
  - Hydroureter [Unknown]
  - Hydronephrosis [Unknown]
  - Nephrolithiasis [Unknown]
  - Gastric ulcer haemorrhage [Unknown]
  - Milk-alkali syndrome [Recovered/Resolved]
  - Calculus urinary [Unknown]
  - Drug interaction [Recovered/Resolved]
  - Anaemia [Unknown]
  - Hypokalaemia [Recovered/Resolved]
  - Hypomagnesaemia [Recovered/Resolved]
  - Hypochloraemia [Recovered/Resolved]
